FAERS Safety Report 9177693 (Version 3)
Quarter: 2013Q4

REPORT INFORMATION
  Report Type: Spontaneous
  Country: IT (occurrence: None)
  Receive Date: 20130319
  Receipt Date: 20131029
  Transmission Date: 20140711
  Serious: Yes (Hospitalization, Other)
  Sender: FDA-Public Use
  Company Number: AUR-APL-2013-02319

PATIENT
  Age: 65 Year
  Sex: Female
  Weight: 70 kg

DRUGS (10)
  1. RAMIPRIL [Suspect]
     Indication: ARTHRITIS
     Dosage: 50MG, 1 D
     Dates: start: 2011
  2. CELEBREX (CELECOXIB) [Suspect]
     Indication: OSTEOARTHRITIS
     Dosage: 200MG 1 D, ORAL
     Route: 048
  3. CLONIDINE (CLONIDINE) [Concomitant]
  4. ATENOLOL (ATENOLOL) [Concomitant]
  5. LISINOPRIL (LISINOPRIL) [Concomitant]
  6. XANAX (ALPRAZOLAM) [Concomitant]
  7. SYNTHROID (LEVOTHYROXINE SODIUM) [Concomitant]
  8. SYNTHROID (LEVOTHYROXINE SODIUM) [Concomitant]
  9. PREMARIN (ESTROGENS CONJUGATED) [Concomitant]
  10. MEDROXYPROGESTERONE (MEDROXYPROGESTERONE) [Concomitant]

REACTIONS (17)
  - Arrhythmia [None]
  - Dyspnoea [None]
  - Panic attack [None]
  - Pain in extremity [None]
  - Sciatica [None]
  - Bladder prolapse [None]
  - Urethral prolapse [None]
  - Neck pain [None]
  - Arthralgia [None]
  - Back pain [None]
  - Joint swelling [None]
  - Drug ineffective [None]
  - Dysuria [None]
  - Device leakage [None]
  - Gastrointestinal disorder [None]
  - Local swelling [None]
  - Treatment noncompliance [None]
